FAERS Safety Report 9462533 (Version 1)
Quarter: 2013Q3

REPORT INFORMATION
  Report Type: Spontaneous
  Country: US (occurrence: None)
  Receive Date: 20130815
  Receipt Date: 20130815
  Transmission Date: 20140515
  Serious: No
  Sender: FDA-Public Use
  Company Number: None

PATIENT
  Age: 74 Year
  Sex: Male
  Weight: 100.5 kg

DRUGS (1)
  1. PIOGLITAZONE [Suspect]
     Indication: DIABETES MELLITUS
     Dates: start: 20080501, end: 20110428

REACTIONS (5)
  - Fatigue [None]
  - Oedema [None]
  - Dyspnoea [None]
  - Oedema peripheral [None]
  - Blood creatinine increased [None]
